FAERS Safety Report 25897609 (Version 3)
Quarter: 2025Q4

REPORT INFORMATION
  Report Type: Spontaneous
  Country: JP (occurrence: JP)
  Receive Date: 20251008
  Receipt Date: 20251103
  Transmission Date: 20260118
  Serious: Yes (Hospitalization, Other)
  Sender: MERCK SHARP & DOHME LLC
  Company Number: JP-009507513-2336060

PATIENT
  Age: 58 Year
  Sex: Male

DRUGS (4)
  1. WELIREG [Suspect]
     Active Substance: BELZUTIFAN
     Indication: Renal cell carcinoma stage IV
     Dosage: STRENGTH:40MG
     Route: 048
     Dates: start: 20250917, end: 20250917
  2. KEYTRUDA [Suspect]
     Active Substance: PEMBROLIZUMAB
     Indication: Renal cell carcinoma recurrent
     Route: 065
  3. LENVIMA [Suspect]
     Active Substance: LENVATINIB
     Indication: Renal cell carcinoma recurrent
     Route: 065
  4. AXITINIB [Concomitant]
     Active Substance: AXITINIB
     Indication: Renal cell carcinoma recurrent
     Route: 065

REACTIONS (6)
  - Malignant neoplasm progression [Unknown]
  - Arrhythmia [Unknown]
  - C-reactive protein increased [Unknown]
  - Pyrexia [Unknown]
  - Hospitalisation [Unknown]
  - Hyperventilation [Recovering/Resolving]

NARRATIVE: CASE EVENT DATE: 20250101
